FAERS Safety Report 12146210 (Version 1)
Quarter: 2016Q1

REPORT INFORMATION
  Report Type: Spontaneous
  Country: CA (occurrence: CA)
  Receive Date: 20160304
  Receipt Date: 20160304
  Transmission Date: 20160526
  Serious: Yes (Hospitalization)
  Sender: FDA-Public Use
  Company Number: CA-JNJFOC-20160227458

PATIENT
  Age: 78 Year
  Sex: Female
  Weight: 59 kg

DRUGS (13)
  1. IMBRUVICA [Suspect]
     Active Substance: IBRUTINIB
     Indication: CHRONIC LYMPHOCYTIC LEUKAEMIA
     Route: 048
  2. CRANBERRY. [Concomitant]
     Active Substance: CRANBERRY
  3. TEA, GREEN [Concomitant]
     Active Substance: GREEN TEA LEAF
  4. VITAMIN B12 [Concomitant]
     Active Substance: CYANOCOBALAMIN
  5. MAGNESIUM [Concomitant]
     Active Substance: MAGNESIUM
  6. VITAMIN D [Concomitant]
     Active Substance: CHOLECALCIFEROL
  7. GINSENG EXTRACT [Concomitant]
     Active Substance: GINSENG EXTRACT
  8. PROBIOTICA [Concomitant]
     Active Substance: PROBIOTICS NOS
  9. CHONDROITIN SULFATE W/GLUCOSAMINE [Concomitant]
  10. CALCIUM [Concomitant]
     Active Substance: CALCIUM
  11. FOLIC ACID. [Concomitant]
     Active Substance: FOLIC ACID
  12. VITAMIN C [Concomitant]
     Active Substance: ASCORBIC ACID
  13. NIACIN. [Concomitant]
     Active Substance: NIACIN

REACTIONS (4)
  - Cardiac failure acute [Not Recovered/Not Resolved]
  - Dyspnoea [Not Recovered/Not Resolved]
  - Respiratory failure [Not Recovered/Not Resolved]
  - Atrial fibrillation [Not Recovered/Not Resolved]
